FAERS Safety Report 24355993 (Version 1)
Quarter: 2024Q3

REPORT INFORMATION
  Report Type: Spontaneous
  Country: US (occurrence: US)
  Receive Date: 20240924
  Receipt Date: 20240924
  Transmission Date: 20241016
  Serious: No
  Sender: ASTELLAS
  Company Number: US-ASTELLAS-2024-AER-006933

PATIENT
  Age: 69 Year
  Sex: Male

DRUGS (1)
  1. CRESEMBA [Suspect]
     Active Substance: ISAVUCONAZONIUM SULFATE
     Indication: Product used for unknown indication
     Dosage: CURRENTLY TAKING MEDICATION
     Route: 065
     Dates: start: 20240913

REACTIONS (1)
  - Accidental exposure to product packaging [Unknown]

NARRATIVE: CASE EVENT DATE: 20240913
